FAERS Safety Report 23950827 (Version 2)
Quarter: 2024Q2

REPORT INFORMATION
  Report Type: Report from Study
  Country: CO (occurrence: CO)
  Receive Date: 20240607
  Receipt Date: 20240626
  Transmission Date: 20240715
  Serious: Yes (Other)
  Sender: FDA-Public Use
  Company Number: CO-NOVOPROD-1233212

PATIENT
  Age: 58 Year
  Sex: Female
  Weight: 68 kg

DRUGS (1)
  1. RYBELSUS [Suspect]
     Active Substance: SEMAGLUTIDE
     Indication: Type 1 diabetes mellitus
     Dosage: 7 MG, QD
     Dates: start: 20240207

REACTIONS (1)
  - Renal mass [Unknown]
